FAERS Safety Report 19192331 (Version 4)
Quarter: 2021Q2

REPORT INFORMATION
  Report Type: Spontaneous
  Country: DE (occurrence: DE)
  Receive Date: 20210428
  Receipt Date: 20210608
  Transmission Date: 20210717
  Serious: Yes (Life-Threatening, Hospitalization)
  Sender: FDA-Public Use
  Company Number: DE-CELGENEUS-DEU-20210403061

PATIENT
  Age: 81 Year
  Sex: Male
  Weight: 81 kg

DRUGS (17)
  1. TOREM [Concomitant]
     Active Substance: TORSEMIDE
     Indication: HAEMATOMA
     Dosage: 5 MILLIGRAM
     Route: 048
     Dates: start: 20210301
  2. VENETOCLAX. [Concomitant]
     Active Substance: VENETOCLAX
     Dosage: 50 MILLIGRAM
     Route: 048
     Dates: start: 20200510
  3. GRANISETRON BETA [Concomitant]
     Indication: NAUSEA
     Route: 048
     Dates: start: 20201214
  4. ASPIRIN. [Concomitant]
     Active Substance: ASPIRIN
     Indication: CORONARY ARTERY DISEASE
     Dosage: 100 MILLIGRAM
     Route: 048
  5. AZACITIDINE. [Suspect]
     Active Substance: AZACITIDINE
     Route: 058
     Dates: start: 20210510
  6. MAGALDRAT [Concomitant]
     Active Substance: MAGALDRATE
     Indication: GASTRITIS
     Route: 065
     Dates: start: 20210121
  7. LACTOBACILLUS [Concomitant]
     Active Substance: LACTOBACILLUS ACIDOPHILUS
     Indication: SUPPLEMENTATION THERAPY
     Route: 048
     Dates: start: 20201230
  8. AZACITIDINE. [Suspect]
     Active Substance: AZACITIDINE
     Indication: MYELODYSPLASTIC SYNDROME
     Route: 058
     Dates: start: 20201214, end: 20210316
  9. LUTEIN [Concomitant]
     Active Substance: LUTEIN
     Indication: DRY EYE
     Dosage: 10 MILLIGRAM
     Route: 048
     Dates: start: 2012
  10. ALLOPURINOL. [Concomitant]
     Active Substance: ALLOPURINOL
     Indication: PROPHYLAXIS
     Dosage: 100 MILLIGRAM
     Route: 048
     Dates: start: 20201214
  11. VITAMIN D [Concomitant]
     Active Substance: VITAMIN D NOS
     Indication: VITAMIN D DEFICIENCY
     Dosage: 1000 IU (INTERNATIONAL UNIT)
     Route: 065
     Dates: start: 20200813
  12. SYSTANE (HYPROMELLOSE 2910 (4000 MPA.S)) [Concomitant]
     Active Substance: HYPROMELLOSE 2910 (4000 MPA.S)
     Indication: DRY EYE
     Route: 047
     Dates: start: 20200502
  13. PANTOPRAZOLE [Concomitant]
     Active Substance: PANTOPRAZOLE
     Indication: GASTRITIS
     Dosage: 80 MILLIGRAM
     Route: 048
     Dates: start: 20210121
  14. CEFUROXIM [Concomitant]
     Active Substance: CEFUROXIME
     Indication: INFECTION
     Dosage: 100 MILLIGRAM
     Route: 065
     Dates: start: 20210329
  15. VENETOCLAX. [Concomitant]
     Active Substance: VENETOCLAX
     Indication: MYELODYSPLASTIC SYNDROME
     Dosage: 400 MILLIGRAM
     Route: 048
     Dates: start: 20201214, end: 20210321
  16. PROSTAGUT [Concomitant]
     Indication: BENIGN PROSTATIC HYPERPLASIA
     Dosage: 160/120 MG
     Route: 048
     Dates: start: 20101215
  17. KALIUM CHLORID [Concomitant]
     Active Substance: POTASSIUM CHLORIDE
     Indication: HYPOKALAEMIA
     Dosage: 600 MILLIGRAM
     Route: 065
     Dates: start: 20210301

REACTIONS (1)
  - Neutropenic sepsis [Recovered/Resolved]

NARRATIVE: CASE EVENT DATE: 20210406
